FAERS Safety Report 16021431 (Version 3)
Quarter: 2019Q2

REPORT INFORMATION
  Report Type: Report from Study
  Country: US (occurrence: US)
  Receive Date: 20190301
  Receipt Date: 20190530
  Transmission Date: 20190711
  Serious: Yes (Hospitalization)
  Sender: FDA-Public Use
  Company Number: US-ROCHE-2269327

PATIENT
  Age: 67 Year
  Sex: Female

DRUGS (15)
  1. LORATADINE. [Concomitant]
     Active Substance: LORATADINE
  2. DULOXETINE. [Concomitant]
     Active Substance: DULOXETINE
  3. PIRFENIDONE. [Suspect]
     Active Substance: PIRFENIDONE
     Indication: PRODUCT USED FOR UNKNOWN INDICATION
     Route: 065
     Dates: end: 20180716
  4. FIBER [Concomitant]
     Active Substance: PSYLLIUM HUSK
  5. ESOMEPRAZOLE MAGNESIUM. [Concomitant]
     Active Substance: ESOMEPRAZOLE MAGNESIUM
  6. PREDNISONE. [Concomitant]
     Active Substance: PREDNISONE
  7. DIAZEPAM. [Concomitant]
     Active Substance: DIAZEPAM
  8. MIRTAZAPINE. [Concomitant]
     Active Substance: MIRTAZAPINE
  9. OXYGEN. [Concomitant]
     Active Substance: OXYGEN
  10. HYDROCODONE [Concomitant]
     Active Substance: HYDROCODONE
  11. GUAIFENESIN. [Concomitant]
     Active Substance: GUAIFENESIN
  12. RANITIDINE. [Concomitant]
     Active Substance: RANITIDINE
  13. ONDANSETRON [Concomitant]
     Active Substance: ONDANSETRON
  14. BUPROPION. [Concomitant]
     Active Substance: BUPROPION
  15. MYCOPHENOLATE MOFETIL. [Suspect]
     Active Substance: MYCOPHENOLATE MOFETIL
     Indication: SYSTEMIC SCLEROSIS PULMONARY
     Dosage: (5 CAPSULES)
     Route: 048
     Dates: start: 20180523

REACTIONS (4)
  - Dyspnoea [Recovering/Resolving]
  - Pleural effusion [Recovering/Resolving]
  - Pulmonary embolism [Unknown]
  - Pneumonia aspiration [Unknown]

NARRATIVE: CASE EVENT DATE: 20190121
